FAERS Safety Report 24915033 (Version 3)
Quarter: 2025Q2

REPORT INFORMATION
  Report Type: Spontaneous
  Country: DE (occurrence: DE)
  Receive Date: 20250203
  Receipt Date: 20250630
  Transmission Date: 20250717
  Serious: Yes (Other)
  Sender: CSL BEHRING
  Company Number: DE-BEH-2025193707

PATIENT
  Sex: Female

DRUGS (3)
  1. HAEMOCOMPLETTAN P [Suspect]
     Active Substance: FIBRINOGEN HUMAN
     Indication: Factor I deficiency
     Dosage: 2 G, QMT AS NEEDED
     Route: 042
  2. HAEMOCOMPLETTAN P [Suspect]
     Active Substance: FIBRINOGEN HUMAN
     Dosage: 2 G, QW
     Route: 042
  3. HAEMOCOMPLETTAN P [Suspect]
     Active Substance: FIBRINOGEN HUMAN
     Dosage: 2G IN 1.5H
     Route: 042

REACTIONS (3)
  - Hepatitis C [Recovered/Resolved]
  - Suspected transmission of an infectious agent via product [Recovered/Resolved]
  - Chills [Recovered/Resolved]
